FAERS Safety Report 25438003 (Version 1)
Quarter: 2025Q2

REPORT INFORMATION
  Report Type: Spontaneous
  Country: US (occurrence: US)
  Receive Date: 20250616
  Receipt Date: 20250616
  Transmission Date: 20250716
  Serious: No
  Sender: ROCHE
  Company Number: US-ROCHE-10000304508

PATIENT
  Age: 30 Year
  Sex: Female
  Weight: 104.32 kg

DRUGS (15)
  1. OCREVUS [Suspect]
     Active Substance: OCRELIZUMAB
     Indication: Relapsing-remitting multiple sclerosis
     Route: 042
  2. SUMATRIPTAN [Concomitant]
     Active Substance: SUMATRIPTAN
     Indication: Migraine
     Route: 048
     Dates: start: 20250530
  3. BACLOFEN [Concomitant]
     Active Substance: BACLOFEN
     Indication: Clonus
     Route: 048
     Dates: start: 20250418
  4. BACLOFEN [Concomitant]
     Active Substance: BACLOFEN
     Indication: Muscle spasticity
  5. BACLOFEN [Concomitant]
     Active Substance: BACLOFEN
     Indication: Clonus
  6. LACOSAMIDE [Concomitant]
     Active Substance: LACOSAMIDE
     Indication: Seizure
     Route: 048
     Dates: start: 20250416
  7. DULOXETINE [Concomitant]
     Active Substance: DULOXETINE
     Indication: Depression
     Route: 048
     Dates: start: 20250217
  8. VITAMIN B12 [Concomitant]
     Active Substance: CYANOCOBALAMIN
     Route: 030
     Dates: start: 20250211
  9. EMGALITY [Concomitant]
     Active Substance: GALCANEZUMAB-GNLM
     Indication: Migraine
     Route: 058
     Dates: start: 20250211
  10. PROMETHAZINE [Concomitant]
     Active Substance: PROMETHAZINE HYDROCHLORIDE
     Indication: Nausea
     Route: 048
     Dates: start: 20250211
  11. TAMSULOSIN [Concomitant]
     Active Substance: TAMSULOSIN
     Indication: Neurogenic bladder
     Route: 048
     Dates: start: 20250211
  12. PREGABALIN [Concomitant]
     Active Substance: PREGABALIN
     Indication: Neuropathy peripheral
     Route: 048
     Dates: start: 202503
  13. PREGABALIN [Concomitant]
     Active Substance: PREGABALIN
     Indication: Hyperreflexia
  14. HYDROXYZINE HYDROCHLORIDE [Concomitant]
     Active Substance: HYDROXYZINE HYDROCHLORIDE
     Indication: Anxiety
     Route: 048
     Dates: start: 2023
  15. PROPRANOLOL [Concomitant]
     Active Substance: PROPRANOLOL HYDROCHLORIDE
     Indication: Tremor
     Route: 048
     Dates: start: 202406

REACTIONS (18)
  - Flushing [Recovering/Resolving]
  - Ear discomfort [Recovering/Resolving]
  - Fatigue [Not Recovered/Not Resolved]
  - Hypoxia [Not Recovered/Not Resolved]
  - Rapid eye movements sleep abnormal [Not Recovered/Not Resolved]
  - Sleep apnoea syndrome [Not Recovered/Not Resolved]
  - Tremor [Not Recovered/Not Resolved]
  - Gait disturbance [Not Recovered/Not Resolved]
  - Muscular weakness [Not Recovered/Not Resolved]
  - Diplopia [Not Recovered/Not Resolved]
  - Tendonitis [Not Recovered/Not Resolved]
  - Arthralgia [Not Recovered/Not Resolved]
  - Haemorrhoids [Not Recovered/Not Resolved]
  - Faeces hard [Not Recovered/Not Resolved]
  - Clonus [Unknown]
  - Seizure [Unknown]
  - Neurogenic bladder [Not Recovered/Not Resolved]
  - Muscle spasms [Unknown]

NARRATIVE: CASE EVENT DATE: 20240611
